FAERS Safety Report 6888929-6 (Version None)
Quarter: 2010Q3

REPORT INFORMATION
  Report Type: 
  Country: None (occurrence: None)
  Receive Date: 20100730
  Receipt Date: 20100722
  Transmission Date: 20110219
  Serious: Yes (Other)
  Sender: FDA-Public Use
  Company Number: JP-MERCK-1007USA03146

PATIENT
  Age: 75 Year
  Sex: Female

DRUGS (7)
  1. FOSAMAX [Suspect]
     Indication: OSTEOPOROSIS
     Route: 048
     Dates: start: 20070911, end: 20080720
  2. FOSAMAX [Suspect]
     Indication: LUMBAR VERTEBRAL FRACTURE
     Route: 048
     Dates: start: 20070911, end: 20080720
  3. DEPAS [Concomitant]
     Indication: INSOMNIA
     Route: 048
  4. LOXONIN [Concomitant]
     Indication: BACK PAIN
     Route: 048
     Dates: start: 20080723
  5. LOXONIN [Concomitant]
     Indication: OSTEOARTHRITIS
     Route: 048
     Dates: start: 20080723
  6. KETOPROFEN [Concomitant]
     Indication: BACK PAIN
     Route: 065
     Dates: start: 20070921
  7. KETOPROFEN [Concomitant]
     Indication: OSTEOARTHRITIS
     Route: 065
     Dates: start: 20070921

REACTIONS (1)
  - OSTEOMYELITIS [None]
